FAERS Safety Report 20318247 (Version 1)
Quarter: 2022Q1

REPORT INFORMATION
  Report Type: Spontaneous
  Country: FR (occurrence: FR)
  Receive Date: 20220110
  Receipt Date: 20220110
  Transmission Date: 20220424
  Serious: Yes (Death)
  Sender: FDA-Public Use
  Company Number: None

PATIENT
  Age: 93 Year
  Sex: Female
  Weight: 51.9 kg

DRUGS (2)
  1. FLUCONAZOLE [Suspect]
     Active Substance: FLUCONAZOLE
     Indication: Product used for unknown indication
     Dosage: 200MG/JR
     Route: 048
     Dates: end: 20211205
  2. METHOTREXATE (METHOTREXATE SODIUM) [Suspect]
     Active Substance: METHOTREXATE SODIUM
     Indication: Rheumatoid arthritis
     Dosage: 50 MILLIGRAM, QW,, INSTEAD OF 15MG / WEEK
     Route: 058
     Dates: start: 20211110, end: 20211205

REACTIONS (2)
  - Pancytopenia [Fatal]
  - Product prescribing error [Fatal]

NARRATIVE: CASE EVENT DATE: 20211205
